FAERS Safety Report 5806374-9 (Version None)
Quarter: 2008Q3

REPORT INFORMATION
  Report Type: 
  Country: None (occurrence: None)
  Receive Date: 20080710
  Receipt Date: 20050905
  Transmission Date: 20090109
  Serious: Yes (Hospitalization)
  Sender: FDA-Public Use
  Company Number: IT-ROCHE-571007

PATIENT

DRUGS (2)
  1. PEGASYS [Suspect]
     Route: 065
  2. RIBAVIRIN [Suspect]
     Route: 065

REACTIONS (4)
  - CONCUSSION [None]
  - HEAD INJURY [None]
  - SKULL FRACTURE [None]
  - SYNCOPE [None]
